FAERS Safety Report 4626140-X (Version None)
Quarter: 2005Q2

REPORT INFORMATION
  Report Type: 
  Country: None (occurrence: None)
  Receive Date: 20050404
  Receipt Date: 20050107
  Transmission Date: 20051028
  Serious: Yes (Other)
  Sender: FDA-Public Use
  Company Number: US-BRISTOL-MYERS SQUIBB COMPANY-12819850

PATIENT
  Age: 64 Year
  Sex: Female

DRUGS (4)
  1. ESTRACE [Suspect]
     Dates: start: 19930101, end: 20010801
  2. MEDROXYPROGESTERONE [Suspect]
     Dates: start: 19930101, end: 20010801
  3. OGEN [Suspect]
     Dosage: PHARMACY RECORDS SHOW PATIENT RECEIVED PRESCRIPTION ON 02-FEB-1993
  4. PREMPRO [Suspect]
     Dosage: DOSE: 0.625MG/2.5MG; PHARMACY RECORDS INDICATE PT RECEIVED FROM 11-OCT-1999 TO 21-JUL-2000

REACTIONS (1)
  - BREAST CANCER [None]
